FAERS Safety Report 5327985-3 (Version None)
Quarter: 2007Q2

REPORT INFORMATION
  Report Type: 
  Country: None (occurrence: None)
  Receive Date: 20070517
  Receipt Date: 20070508
  Transmission Date: 20071010
  Serious: Yes (Hospitalization)
  Sender: FDA-Public Use
  Company Number: JP-ALLERGAN-0705011US

PATIENT
  Sex: Female

DRUGS (9)
  1. ALESION SYRUP [Suspect]
     Indication: RHINITIS SEASONAL
     Dosage: 1 G, QD
     Route: 048
     Dates: start: 20060318, end: 20060424
  2. ONON [Concomitant]
     Indication: ASTHMA
     Dosage: 2 G, UNK
     Route: 048
     Dates: start: 20060415
  3. SEREVENT [Concomitant]
     Indication: ASTHMA
     Dosage: 1 DF, UNK
     Route: 055
     Dates: start: 20060415
  4. FLUTICASONE PROPIONATE [Concomitant]
     Indication: ASTHMA
     Dosage: 1 DF, UNK
     Route: 055
     Dates: start: 20060415
  5. INTAL [Concomitant]
     Indication: CONJUNCTIVITIS ALLERGIC
     Route: 047
     Dates: start: 20060415
  6. FLOMOX [Concomitant]
     Indication: ASTHMA
     Dosage: 300 MG, UNK
     Route: 048
     Dates: start: 20060420
  7. MUCODYNE [Concomitant]
     Indication: ASTHMA
     Dosage: 750 MG, UNK
     Route: 048
     Dates: start: 20060420, end: 20060424
  8. MUCOSOLVAN [Concomitant]
     Dosage: 45 MG, UNK
     Route: 048
  9. CALONAL [Concomitant]
     Indication: ASTHMA
     Dosage: 200 MG, PRN
     Route: 048
     Dates: start: 20060420, end: 20060424

REACTIONS (1)
  - ASTHMA [None]
